FAERS Safety Report 9805588 (Version 1)
Quarter: 2014Q1

REPORT INFORMATION
  Report Type: Spontaneous
  Country: US (occurrence: US)
  Receive Date: 20140109
  Receipt Date: 20140109
  Transmission Date: 20141002
  Serious: Yes (Death, Other)
  Sender: FDA-Public Use
  Company Number: US-UCBSA-108212

PATIENT
  Age: 51 Year
  Sex: Male

DRUGS (10)
  1. OMEPRAZOLE [Suspect]
     Route: 048
  2. OXYCODONE [Suspect]
     Route: 048
  3. DIAZEPAM [Suspect]
     Route: 048
  4. MORPHINE [Suspect]
     Route: 048
  5. METAXALONE [Suspect]
     Route: 048
  6. DULOXETINE [Suspect]
     Route: 048
  7. BACLOFEN [Suspect]
     Route: 048
  8. FINASTERIDE [Suspect]
     Route: 048
  9. GABAPENTIN [Suspect]
     Route: 048
  10. VITAMIN B3 (NIACIN) [Suspect]
     Route: 048

REACTIONS (1)
  - Completed suicide [Fatal]
